FAERS Safety Report 7157457-5 (Version None)
Quarter: 2010Q4

REPORT INFORMATION
  Report Type: 
  Country: None (occurrence: None)
  Receive Date: 20101214
  Receipt Date: 20101208
  Transmission Date: 20110411
  Serious: Yes (Hospitalization)
  Sender: FDA-Public Use
  Company Number: B0673340A

PATIENT
  Age: 34 Year
  Sex: Female

DRUGS (1)
  1. ZINNAT [Suspect]
     Indication: BRONCHITIS
     Route: 065
     Dates: start: 20100830

REACTIONS (4)
  - DRUG EXPOSURE DURING PREGNANCY [None]
  - EPISTAXIS [None]
  - NAUSEA [None]
  - VOMITING [None]
